FAERS Safety Report 5774730-3 (Version None)
Quarter: 2008Q2

REPORT INFORMATION
  Report Type: 
  Country: None (occurrence: None)
  Receive Date: 20080616
  Receipt Date: 20080616
  Transmission Date: 20081010
  Serious: Yes (Disabling)
  Sender: FDA-Public Use
  Company Number: None

PATIENT
  Age: 63 Year
  Sex: Male
  Weight: 73.0291 kg

DRUGS (1)
  1. CHANTIX [Suspect]
     Indication: SMOKING CESSATION THERAPY
     Dosage: 1 MG 2 A DAY ORAL
     Route: 048
     Dates: start: 20080221, end: 20080507

REACTIONS (3)
  - ANXIETY [None]
  - DEPRESSION [None]
  - DYSPNOEA [None]
